FAERS Safety Report 4719957-4 (Version None)
Quarter: 2005Q3

REPORT INFORMATION
  Report Type: 
  Country: None (occurrence: None)
  Receive Date: 20050721
  Receipt Date: 20050214
  Transmission Date: 20060218
  Serious: No
  Sender: FDA-Public Use
  Company Number: US-GLAXOSMITHKLINE-A0545453A

PATIENT
  Age: 78 Year
  Sex: Female

DRUGS (2)
  1. AVANDIA [Suspect]
     Dosage: 4MG PER DAY
     Route: 048
     Dates: start: 20041129, end: 20041201
  2. PRINIVIL [Concomitant]

REACTIONS (2)
  - HYPERSENSITIVITY [None]
  - PALPITATIONS [None]
